FAERS Safety Report 5421556-6 (Version None)
Quarter: 2007Q3

REPORT INFORMATION
  Report Type: 
  Country: None (occurrence: None)
  Receive Date: 20070718
  Receipt Date: 20070102
  Transmission Date: 20080115
  Serious: Yes (Death, Other)
  Sender: FDA-Public Use
  Company Number: 2007001816

PATIENT
  Age: 76 Year
  Sex: Male
  Weight: 81.6 kg

DRUGS (1)
  1. CELEBREX [Suspect]
     Indication: PROSTATE CANCER
     Dosage: 800 MG (200 MG, 4 IN 1 D)
     Dates: start: 20030801, end: 20041021

REACTIONS (1)
  - MYOCARDIAL INFARCTION [None]
